FAERS Safety Report 9734818 (Version 1)
Quarter: 2013Q4

REPORT INFORMATION
  Report Type: Spontaneous
  Country: IT (occurrence: IT)
  Receive Date: 20131206
  Receipt Date: 20131206
  Transmission Date: 20140711
  Serious: Yes (Hospitalization)
  Sender: FDA-Public Use
  Company Number: IT-ROCHE-1312699

PATIENT
  Age: 65 Year
  Sex: Female

DRUGS (2)
  1. ZELBORAF [Suspect]
     Indication: MALIGNANT MELANOMA
     Route: 048
     Dates: start: 20130723, end: 20131115
  2. NORVASC [Concomitant]
     Route: 048
     Dates: start: 20130802, end: 20131115

REACTIONS (1)
  - Hypertensive crisis [Recovered/Resolved]
